FAERS Safety Report 18791697 (Version 1)
Quarter: 2021Q1

REPORT INFORMATION
  Report Type: Spontaneous
  Country: US (occurrence: US)
  Receive Date: 20210126
  Receipt Date: 20210126
  Transmission Date: 20210419
  Serious: No
  Sender: FDA-Public Use
  Company Number: US-PERRIGO-20US003340

PATIENT
  Age: 55 Year
  Sex: Female
  Weight: 113.38 kg

DRUGS (1)
  1. IBUPROFEN AND DIPHENHYDRAMINE CITRATE [Suspect]
     Active Substance: DIPHENHYDRAMINE CITRATE\IBUPROFEN
     Indication: WRONG PRODUCT ADMINISTERED
     Dosage: 4 TABLETS, SINGLE
     Route: 048
     Dates: start: 20200226, end: 20200226

REACTIONS (5)
  - Blood pressure increased [Recovered/Resolved]
  - Abdominal discomfort [Recovering/Resolving]
  - Palpitations [Recovered/Resolved]
  - Wrong product administered [Recovered/Resolved]
  - Fatigue [Recovering/Resolving]

NARRATIVE: CASE EVENT DATE: 20200226
